FAERS Safety Report 15088018 (Version 1)
Quarter: 2018Q2

REPORT INFORMATION
  Report Type: Spontaneous
  Country: FR (occurrence: FR)
  Receive Date: 20180629
  Receipt Date: 20180629
  Transmission Date: 20180711
  Serious: Yes (Life-Threatening)
  Sender: FDA-Public Use
  Company Number: FR-TEVA-2018-FR-914948

PATIENT
  Age: 41 Year
  Sex: Male

DRUGS (2)
  1. AMOXICILLIN. [Suspect]
     Active Substance: AMOXICILLIN
     Dates: start: 201701
  2. IBUPROFENE [Concomitant]
     Active Substance: IBUPROFEN
     Route: 065

REACTIONS (7)
  - Laryngeal dyspnoea [Recovered/Resolved]
  - Paraesthesia [Recovered/Resolved]
  - Anaphylactic reaction [Recovered/Resolved]
  - Nasal pruritus [Recovered/Resolved]
  - Palatal oedema [Recovered/Resolved]
  - Rhinorrhoea [Recovered/Resolved]
  - Rash [Recovered/Resolved]

NARRATIVE: CASE EVENT DATE: 201701
